FAERS Safety Report 22323095 (Version 5)
Quarter: 2023Q2

REPORT INFORMATION
  Report Type: Report from Study
  Country: TW (occurrence: TW)
  Receive Date: 20230516
  Receipt Date: 20230627
  Transmission Date: 20230722
  Serious: Yes (Hospitalization)
  Sender: FDA-Public Use
  Company Number: TW-002147023-NVSC2023TW106949

PATIENT
  Age: 67 Year
  Sex: Male
  Weight: 76.3 kg

DRUGS (28)
  1. FLUOROURACIL [Suspect]
     Active Substance: FLUOROURACIL
     Indication: Colorectal cancer metastatic
     Dosage: 764 MG, Q2W
     Route: 042
     Dates: start: 20230419, end: 20230419
  2. BEVACIZUMAB [Suspect]
     Active Substance: BEVACIZUMAB
     Indication: Colorectal cancer metastatic
     Dosage: 381.5 MG, Q2W
     Route: 042
     Dates: start: 20230419, end: 20230419
  3. BEVACIZUMAB [Suspect]
     Active Substance: BEVACIZUMAB
     Dosage: 381.5 MG, Q2W
     Route: 042
     Dates: start: 20230519
  4. NISEVOKITUG [Suspect]
     Active Substance: NISEVOKITUG
     Indication: Colorectal cancer metastatic
     Dosage: 2100 MG, Q2W
     Route: 042
     Dates: start: 20230419, end: 20230419
  5. NISEVOKITUG [Suspect]
     Active Substance: NISEVOKITUG
     Dosage: 2100 MG, Q2W
     Route: 042
     Dates: start: 20230519
  6. LEVOLEUCOVORIN CALCIUM [Suspect]
     Active Substance: LEVOLEUCOVORIN CALCIUM
     Indication: Colorectal cancer metastatic
     Dosage: 764 MG, Q2W
     Route: 042
     Dates: start: 20230419, end: 20230419
  7. LEVOLEUCOVORIN CALCIUM [Suspect]
     Active Substance: LEVOLEUCOVORIN CALCIUM
     Dosage: 764 MG, Q2W
     Route: 042
     Dates: start: 20230519
  8. LOPERAMIDE HYDROCHLORIDE [Concomitant]
     Active Substance: LOPERAMIDE HYDROCHLORIDE
     Indication: Diarrhoea
     Dosage: UNK
     Route: 065
     Dates: start: 20230425, end: 20230502
  9. POTASSIUM CHLORIDE\SODIUM CHLORIDE [Concomitant]
     Active Substance: POTASSIUM CHLORIDE\SODIUM CHLORIDE
     Indication: Hypokalaemia
     Dosage: UNK, IN 0.9% SODIUM CHLORIDE 500 ML
     Route: 065
     Dates: start: 20230509, end: 20230512
  10. TRANEXAMIC ACID [Concomitant]
     Active Substance: TRANEXAMIC ACID
     Indication: Large intestinal haemorrhage
     Dosage: UNK
     Route: 065
     Dates: start: 20230509
  11. OSELTAMIVIR PHOSPHATE [Concomitant]
     Active Substance: OSELTAMIVIR PHOSPHATE
     Indication: Prophylaxis
     Dosage: UNK
     Route: 065
     Dates: start: 20230510, end: 20230510
  12. DIPHENHYDRAMINE HYDROCHLORIDE [Concomitant]
     Active Substance: DIPHENHYDRAMINE HYDROCHLORIDE
     Indication: Prophylaxis
     Dosage: UNK
     Route: 065
     Dates: start: 20230511, end: 20230511
  13. DIPHENHYDRAMINE HYDROCHLORIDE [Concomitant]
     Active Substance: DIPHENHYDRAMINE HYDROCHLORIDE
     Dosage: UNK
     Route: 065
     Dates: start: 20230616, end: 20230616
  14. HYDRALAZINE HCL [Concomitant]
     Active Substance: HYDRALAZINE HYDROCHLORIDE
     Indication: Hypertension
     Dosage: UNK
     Route: 065
     Dates: start: 20230513, end: 20230513
  15. HYDRALAZINE HCL [Concomitant]
     Active Substance: HYDRALAZINE HYDROCHLORIDE
     Dosage: UNK
     Route: 065
     Dates: start: 20230515, end: 20230515
  16. POTASSIUM GLUCONATE [Concomitant]
     Active Substance: POTASSIUM GLUCONATE
     Indication: Hypokalaemia
     Dosage: UNK
     Route: 065
     Dates: start: 20230515, end: 20230518
  17. AMLODIPINE BESYLATE [Concomitant]
     Active Substance: AMLODIPINE BESYLATE
     Indication: Hypertension
     Dosage: UNK
     Route: 065
     Dates: start: 20230516, end: 20230522
  18. DIFLUCORTOLONE VALERATE [Concomitant]
     Active Substance: DIFLUCORTOLONE VALERATE
     Indication: Dermatosis
     Dosage: UNK
     Route: 065
     Dates: start: 20230516, end: 20230522
  19. VALSARTAN [Concomitant]
     Active Substance: VALSARTAN
     Indication: Hypertension
     Dosage: UNK
     Route: 065
     Dates: start: 20230602
  20. BETAMETHASONE [Concomitant]
     Active Substance: BETAMETHASONE
     Indication: Prophylactic chemotherapy
     Dosage: UNK
     Route: 065
     Dates: start: 20230419
  21. HYDROCORTISONE SODIUM SUCCINATE [Concomitant]
     Active Substance: HYDROCORTISONE SODIUM SUCCINATE
     Indication: Prophylactic chemotherapy
     Dosage: UNK
     Route: 065
     Dates: start: 20230419
  22. METOCLOPRAMIDE HYDROCHLORIDE [Concomitant]
     Active Substance: METOCLOPRAMIDE HYDROCHLORIDE
     Indication: Prophylaxis of nausea and vomiting
     Dosage: UNK
     Route: 065
     Dates: start: 20230419
  23. PALONOSETRON [Concomitant]
     Active Substance: PALONOSETRON
     Indication: Prophylaxis of nausea and vomiting
     Dosage: UNK
     Route: 065
     Dates: start: 20230419
  24. LENOGRASTIM [Concomitant]
     Active Substance: LENOGRASTIM
     Indication: Prophylaxis
     Dosage: UNK
     Route: 065
     Dates: start: 20230509, end: 20230510
  25. LENOGRASTIM [Concomitant]
     Active Substance: LENOGRASTIM
     Dosage: UNK
     Route: 065
     Dates: start: 20230522, end: 20230524
  26. LENOGRASTIM [Concomitant]
     Active Substance: LENOGRASTIM
     Dosage: UNK
     Route: 065
     Dates: start: 20230602, end: 20230603
  27. FAMOTIDINE [Concomitant]
     Active Substance: FAMOTIDINE
     Indication: Large intestinal haemorrhage
     Dosage: UNK
     Route: 065
     Dates: start: 20230512
  28. FEXOFENADINE HYDROCHLORIDE [Concomitant]
     Active Substance: FEXOFENADINE HYDROCHLORIDE
     Indication: Rash
     Dosage: UNK
     Route: 065
     Dates: start: 20230602

REACTIONS (2)
  - Febrile neutropenia [Recovered/Resolved]
  - Urinary tract infection [Not Recovered/Not Resolved]

NARRATIVE: CASE EVENT DATE: 20230508
